FAERS Safety Report 8030040-5 (Version None)
Quarter: 2012Q1

REPORT INFORMATION
  Report Type: 
  Country: None (occurrence: None)
  Receive Date: 20120109
  Receipt Date: 20111117
  Transmission Date: 20120608
  Serious: Yes (Hospitalization)
  Sender: FDA-Public Use
  Company Number: CA-JNJFOC-20111104570

PATIENT
  Sex: Female
  Weight: 77.3 kg

DRUGS (4)
  1. IMURAN [Concomitant]
     Route: 065
  2. PREDNISONE TAB [Concomitant]
     Route: 065
  3. REMICADE [Suspect]
     Indication: CROHN'S DISEASE
     Route: 042
     Dates: start: 20090805
  4. SOLU-CORTEF [Suspect]
     Indication: PRODUCT USED FOR UNKNOWN INDICATION
     Route: 065

REACTIONS (3)
  - GASTROINTESTINAL HAEMORRHAGE [None]
  - MIGRAINE [None]
  - STAPHYLOCOCCAL INFECTION [None]
